FAERS Safety Report 4534438-9 (Version None)
Quarter: 2004Q4

REPORT INFORMATION
  Report Type: 
  Country: None (occurrence: None)
  Receive Date: 20041222
  Receipt Date: 20041215
  Transmission Date: 20050328
  Serious: Yes (Hospitalization)
  Sender: FDA-Public Use
  Company Number: 200414702FR

PATIENT
  Age: 27 Year
  Sex: Male
  Weight: 80 kg

DRUGS (9)
  1. RIFADIN [Suspect]
     Indication: ARTHRITIS INFECTIVE
     Route: 042
     Dates: start: 20041030, end: 20041115
  2. LOVENOX [Suspect]
     Indication: STAPHYLOCOCCAL INFECTION
     Route: 058
     Dates: start: 20041006, end: 20041122
  3. PEFLACINE [Concomitant]
     Route: 042
     Dates: start: 20041015
  4. GENTAMYCINE [Concomitant]
     Dates: start: 20041008, end: 20041015
  5. ORBENIN CAP [Concomitant]
     Dates: start: 20041008, end: 20041029
  6. LEXOMIL [Concomitant]
  7. DAFALGAN [Concomitant]
  8. MYOLASTAN [Concomitant]
  9. STILNOX [Concomitant]
     Route: 048

REACTIONS (11)
  - ALANINE AMINOTRANSFERASE INCREASED [None]
  - ASPARTATE AMINOTRANSFERASE INCREASED [None]
  - BLOOD ALKALINE PHOSPHATASE INCREASED [None]
  - C-REACTIVE PROTEIN INCREASED [None]
  - CHEST PAIN [None]
  - CHOLESTASIS [None]
  - DEEP VEIN THROMBOSIS [None]
  - GAMMA-GLUTAMYLTRANSFERASE INCREASED [None]
  - HEPATIC TRAUMA [None]
  - PAIN EXACERBATED [None]
  - PULMONARY EMBOLISM [None]
